FAERS Safety Report 12167432 (Version 1)
Quarter: 2016Q1

REPORT INFORMATION
  Report Type: Spontaneous
  Country: US (occurrence: US)
  Receive Date: 20160310
  Receipt Date: 20160310
  Transmission Date: 20160526
  Serious: No
  Sender: FDA-Public Use
  Company Number: US-PFIZER INC-2016131132

PATIENT
  Sex: Male

DRUGS (2)
  1. GLIPIZIDE. [Suspect]
     Active Substance: GLIPIZIDE
     Dosage: 5 MG, UNK
  2. GLIPIZIDE. [Suspect]
     Active Substance: GLIPIZIDE
     Dosage: 10 MG, UNK

REACTIONS (2)
  - Drug effect incomplete [Unknown]
  - Blood triglycerides increased [Unknown]
